FAERS Safety Report 4359040-3 (Version None)
Quarter: 2004Q2

REPORT INFORMATION
  Report Type: 
  Country: None (occurrence: None)
  Receive Date: 20040517
  Receipt Date: 20040507
  Transmission Date: 20050107
  Serious: Yes (Hospitalization)
  Sender: FDA-Public Use
  Company Number: JP-GLAXOSMITHKLINE-B0332082A

PATIENT
  Age: 59 Year
  Sex: Female

DRUGS (10)
  1. ZEFIX [Suspect]
     Indication: HEPATIC CIRRHOSIS
     Route: 048
     Dates: start: 20010727, end: 20020825
  2. INTRON A [Concomitant]
  3. PURSENNID [Concomitant]
     Route: 048
  4. GASTER [Concomitant]
     Route: 048
  5. VOLTAREN [Concomitant]
     Route: 054
  6. CYANOCOBALAMIN [Concomitant]
     Route: 048
  7. LACTULOSE [Concomitant]
     Route: 048
  8. INDOMETHACIN [Concomitant]
     Route: 061
  9. DIAZEPAM [Concomitant]
     Route: 048
  10. AMMONIUM GLYCYRRHIZATE [Concomitant]
     Route: 042

REACTIONS (2)
  - ALANINE AMINOTRANSFERASE INCREASED [None]
  - HYPOAESTHESIA [None]
